FAERS Safety Report 7791758-2 (Version None)
Quarter: 2011Q4

REPORT INFORMATION
  Report Type: 
  Country: None (occurrence: None)
  Receive Date: 20111003
  Receipt Date: 20110923
  Transmission Date: 20120403
  Serious: No
  Sender: FDA-Public Use
  Company Number: US-PFIZER INC-2011228199

PATIENT
  Age: 42 Year
  Sex: Female

DRUGS (2)
  1. PREMARIN [Suspect]
     Indication: VULVOVAGINAL DRYNESS
     Dosage: UNK
     Dates: start: 20110920
  2. PREMARIN [Suspect]
     Indication: VULVOVAGINAL BURNING SENSATION

REACTIONS (2)
  - VULVOVAGINAL DRYNESS [None]
  - VULVOVAGINAL BURNING SENSATION [None]
